FAERS Safety Report 24750929 (Version 1)
Quarter: 2024Q4

REPORT INFORMATION
  Report Type: Report from Study
  Country: US (occurrence: US)
  Receive Date: 20241219
  Receipt Date: 20241219
  Transmission Date: 20250114
  Serious: Yes (Other)
  Sender: TAKEDA
  Company Number: US-TAKEDA-2024TUS034000

PATIENT
  Age: 52 Year
  Sex: Female

DRUGS (4)
  1. FRUQUINTINIB [Suspect]
     Active Substance: FRUQUINTINIB
     Indication: Colon cancer
     Dosage: 5 MILLIGRAM
  2. FRUQUINTINIB [Suspect]
     Active Substance: FRUQUINTINIB
     Dosage: 5 MILLIGRAM, QD
  3. FRUQUINTINIB [Suspect]
     Active Substance: FRUQUINTINIB
     Dosage: 4 MILLIGRAM
  4. FRUQUINTINIB [Suspect]
     Active Substance: FRUQUINTINIB
     Dosage: 5 MILLIGRAM

REACTIONS (6)
  - Colon cancer [Unknown]
  - Taste disorder [Not Recovered/Not Resolved]
  - Malaise [Unknown]
  - Diarrhoea [Not Recovered/Not Resolved]
  - Oral pain [Unknown]
  - Product use issue [Unknown]

NARRATIVE: CASE EVENT DATE: 20240403
